FAERS Safety Report 6018835-0 (Version None)
Quarter: 2008Q4

REPORT INFORMATION
  Report Type: 
  Country: None (occurrence: None)
  Receive Date: 20081224
  Receipt Date: 20081215
  Transmission Date: 20090506
  Serious: Yes (Death)
  Sender: FDA-Public Use
  Company Number: US-PFIZER INC-2008154058

PATIENT
  Age: 34 Year
  Sex: Male

DRUGS (3)
  1. LITHIUM CARBONATE [Suspect]
  2. DIAZEPAM [Suspect]
  3. AMITRIPTYLINE [Suspect]

REACTIONS (2)
  - CARDIO-RESPIRATORY ARREST [None]
  - COMPLETED SUICIDE [None]
